FAERS Safety Report 24162523 (Version 1)
Quarter: 2024Q3

REPORT INFORMATION
  Report Type: Spontaneous
  Country: GB (occurrence: GB)
  Receive Date: 20240801
  Receipt Date: 20240801
  Transmission Date: 20241016
  Serious: Yes (Other)
  Sender: BAYER
  Company Number: None

PATIENT
  Age: 61 Year
  Sex: Male

DRUGS (1)
  1. GADOBUTROL [Suspect]
     Active Substance: GADOBUTROL
     Indication: Magnetic resonance imaging heart
     Dosage: 5 ML, ONCE
     Route: 042
     Dates: start: 20240730, end: 20240730

REACTIONS (6)
  - Dyspnoea [Recovered/Resolved]
  - Vomiting [Recovered/Resolved]
  - Chest discomfort [Recovered/Resolved]
  - Ocular hyperaemia [Recovered/Resolved]
  - Feeling abnormal [Recovered/Resolved]
  - Sneezing [Recovered/Resolved]

NARRATIVE: CASE EVENT DATE: 20240730
